FAERS Safety Report 5242919-8 (Version None)
Quarter: 2007Q1

REPORT INFORMATION
  Report Type: 
  Country: None (occurrence: None)
  Receive Date: 20070215
  Receipt Date: 20070201
  Transmission Date: 20070707
  Serious: Yes (Hospitalization)
  Sender: FDA-Public Use
  Company Number: 2007BI002399

PATIENT
  Age: 39 Year
  Sex: Female

DRUGS (1)
  1. NATALIZUMAB [Suspect]
     Indication: MULTIPLE SCLEROSIS
     Dosage: 300 MG; QM; IV
     Route: 042
     Dates: start: 20061007

REACTIONS (3)
  - AMMONIA INCREASED [None]
  - IMMUNE SYSTEM DISORDER [None]
  - TRANSIENT ISCHAEMIC ATTACK [None]
